FAERS Safety Report 14980239 (Version 1)
Quarter: 2018Q2

REPORT INFORMATION
  Report Type: Report from Study
  Country: US (occurrence: US)
  Receive Date: 20180606
  Receipt Date: 20180606
  Transmission Date: 20180711
  Serious: Yes (Other)
  Sender: FDA-Public Use
  Company Number: US-ASTRAZENECA-2018SE72249

PATIENT
  Age: 62 Year
  Sex: Female

DRUGS (12)
  1. TAMOXIFEN [Suspect]
     Active Substance: TAMOXIFEN
     Route: 048
     Dates: start: 201002
  2. ANASTROZOLE. [Suspect]
     Active Substance: ANASTROZOLE
     Route: 048
  3. LORAZEPAM. [Concomitant]
     Active Substance: LORAZEPAM
     Dosage: 0.5-1
     Route: 048
  4. XGEVA [Concomitant]
     Active Substance: DENOSUMAB
     Route: 058
     Dates: end: 20180424
  5. OXYCODONE [Concomitant]
     Active Substance: OXYCODONE
     Dosage: 5.0MG EVERY 8 - 12 HOURS
     Route: 048
  6. VENLAFAXINE [Concomitant]
     Active Substance: VENLAFAXINE HYDROCHLORIDE
     Route: 048
  7. CALCIUM CARBONATE. [Concomitant]
     Active Substance: CALCIUM CARBONATE
     Route: 048
  8. CETRIZINE [Concomitant]
     Active Substance: CETIRIZINE HYDROCHLORIDE
     Dosage: 10MG TAKE AS NEEDED
     Route: 048
  9. PROCHLORPERAZINE. [Concomitant]
     Active Substance: PROCHLORPERAZINE
     Dosage: 10.0MG EVERY 4 - 6 HOURS
     Route: 048
  10. FASLODEX [Suspect]
     Active Substance: FULVESTRANT
     Route: 030
  11. LYNPARZA TABLETS [Concomitant]
     Indication: BREAST CANCER METASTATIC
  12. ONDANSETRON [Concomitant]
     Active Substance: ONDANSETRON

REACTIONS (9)
  - Spinal deformity [Unknown]
  - Bone pain [Unknown]
  - Osteoporosis [Unknown]
  - Ascites [Unknown]
  - Metastases to bone [Unknown]
  - Arthritis [Unknown]
  - Cholelithiasis [Unknown]
  - Disease progression [Unknown]
  - Musculoskeletal disorder [Unknown]
